FAERS Safety Report 20611950 (Version 1)
Quarter: 2022Q1

REPORT INFORMATION
  Report Type: Spontaneous
  Country: CN (occurrence: CN)
  Receive Date: 20220318
  Receipt Date: 20220318
  Transmission Date: 20220423
  Serious: Yes (Hospitalization, Other)
  Sender: FDA-Public Use
  Company Number: CN-PFIZER INC-202200376955

PATIENT
  Age: 25 Year
  Sex: Female
  Weight: 51 kg

DRUGS (8)
  1. SOLU-MEDROL [Suspect]
     Active Substance: METHYLPREDNISOLONE SODIUM SUCCINATE
     Indication: Undifferentiated connective tissue disease
     Dosage: 40 MG, 1X/DAY
     Route: 041
     Dates: start: 20220127, end: 20220129
  2. SOLU-MEDROL [Suspect]
     Active Substance: METHYLPREDNISOLONE SODIUM SUCCINATE
     Indication: Immune thrombocytopenia
  3. SOLU-MEDROL [Suspect]
     Active Substance: METHYLPREDNISOLONE SODIUM SUCCINATE
     Indication: Thrombocytopenic purpura
  4. SOLU-MEDROL [Suspect]
     Active Substance: METHYLPREDNISOLONE SODIUM SUCCINATE
     Indication: Thyroid mass
  5. PREDNISONE [Concomitant]
     Active Substance: PREDNISONE
     Indication: Undifferentiated connective tissue disease
     Dosage: 45 MG, 1X/DAY
     Route: 048
     Dates: start: 20220120, end: 20220126
  6. PREDNISONE [Concomitant]
     Active Substance: PREDNISONE
     Indication: Immune thrombocytopenia
     Dosage: 10 MG, 1X/DAY
     Route: 048
     Dates: start: 20220127, end: 20220129
  7. PREDNISONE [Concomitant]
     Active Substance: PREDNISONE
     Indication: Thrombocytopenic purpura
  8. PREDNISONE [Concomitant]
     Active Substance: PREDNISONE
     Indication: Thyroid mass

REACTIONS (3)
  - Melaena [Recovering/Resolving]
  - Upper gastrointestinal haemorrhage [Recovering/Resolving]
  - Abdominal pain [Recovering/Resolving]

NARRATIVE: CASE EVENT DATE: 20220127
